FAERS Safety Report 6303242-3 (Version None)
Quarter: 2009Q3

REPORT INFORMATION
  Report Type: 
  Country: None (occurrence: None)
  Receive Date: 20090810
  Receipt Date: 20090304
  Transmission Date: 20100115
  Serious: No
  Sender: FDA-Public Use
  Company Number: A0771552A

PATIENT
  Age: 42 Year
  Sex: Female

DRUGS (2)
  1. PAXIL [Suspect]
     Indication: ANXIETY
     Route: 048
     Dates: start: 20081001, end: 20081101
  2. XANAX [Concomitant]

REACTIONS (2)
  - DIZZINESS [None]
  - WITHDRAWAL SYNDROME [None]
